FAERS Safety Report 9492326 (Version 1)
Quarter: 2013Q3

REPORT INFORMATION
  Report Type: Spontaneous
  Country: CO (occurrence: CO)
  Receive Date: 20130830
  Receipt Date: 20130830
  Transmission Date: 20140515
  Serious: Yes (Death, Other)
  Sender: FDA-Public Use
  Company Number: PHHY2013CO093352

PATIENT
  Age: 12 Year
  Sex: Female

DRUGS (14)
  1. METHOTREXATE [Suspect]
     Dosage: 3 DF, UNK
  2. METHOTREXATE [Suspect]
     Dosage: 2 DF, UNK
  3. METHOTREXATE [Suspect]
     Dosage: 2 G/M2
     Dates: start: 20101201
  4. METHOTREXATE [Suspect]
     Dosage: 2 G/M2
     Dates: start: 20110126
  5. METHOTREXATE [Suspect]
     Route: 048
  6. PREDNISOLONE [Concomitant]
  7. VINCRISTINE [Concomitant]
     Dosage: 4 DF, UNK
  8. DAUNORUBICIN [Concomitant]
     Dosage: 2 DF, UNK
  9. L-ASPARAGINASE [Concomitant]
     Dosage: 8 DF, UNK
  10. DEXAMETHASONE [Concomitant]
     Route: 037
     Dates: start: 20101201
  11. CYCLOPHOSPHAMIDE [Concomitant]
     Dosage: 2 DF, UNK
  12. CYTARABINE [Concomitant]
     Dosage: 16 DF, UNK
  13. MERCAPTOPURINE [Concomitant]
  14. FOLINIC ACID [Concomitant]
     Dates: start: 20101201

REACTIONS (5)
  - Death [Fatal]
  - VIIth nerve paralysis [Recovered/Resolved]
  - Hemiparesis [Recovered/Resolved]
  - Sepsis [Unknown]
  - Dysarthria [Recovered/Resolved]
